FAERS Safety Report 5551902-4 (Version None)
Quarter: 2007Q4

REPORT INFORMATION
  Report Type: 
  Country: None (occurrence: None)
  Receive Date: 20071212
  Receipt Date: 20070605
  Transmission Date: 20080405
  Serious: No
  Sender: FDA-Public Use
  Company Number: US-AMGEN-KDL227683

PATIENT
  Sex: Female

DRUGS (1)
  1. ENBREL [Suspect]
     Indication: PSORIASIS
     Route: 058

REACTIONS (5)
  - ENDODONTIC PROCEDURE [None]
  - EYE INFECTION [None]
  - OEDEMA PERIPHERAL [None]
  - PRURITUS [None]
  - SKIN EXFOLIATION [None]
